FAERS Safety Report 11264426 (Version 1)
Quarter: 2015Q3

REPORT INFORMATION
  Report Type: Spontaneous
  Country: US (occurrence: US)
  Receive Date: 20150713
  Receipt Date: 20150713
  Transmission Date: 20151125
  Serious: No
  Sender: FDA-Public Use
  Company Number: US-JNJFOC-20150608525

PATIENT
  Age: 40 Year
  Sex: Female
  Weight: 110.68 kg

DRUGS (6)
  1. REMICADE [Suspect]
     Active Substance: INFLIXIMAB
     Indication: RHEUMATIC DISORDER
     Dosage: APPROXIMATE 2.5 YEARS
     Route: 065
     Dates: start: 201303
  2. REMICADE [Suspect]
     Active Substance: INFLIXIMAB
     Indication: FIBROMYALGIA
     Dosage: APPROXIMATE 2.5 YEARS
     Route: 065
     Dates: start: 201303
  3. LYRICA [Concomitant]
     Active Substance: PREGABALIN
     Indication: FIBROMYALGIA
     Route: 065
     Dates: start: 201302
  4. REMICADE [Suspect]
     Active Substance: INFLIXIMAB
     Indication: PSORIATIC ARTHROPATHY
     Dosage: APPROXIMATE 2.5 YEARS
     Route: 065
     Dates: start: 201303
  5. TYLENOL EXTRA STRENGTH [Suspect]
     Active Substance: ACETAMINOPHEN
     Indication: PREMEDICATION
     Dosage: 500 MG
     Route: 048
     Dates: start: 201502
  6. LYRICA [Concomitant]
     Active Substance: PREGABALIN
     Indication: ARTHRITIS
     Route: 065
     Dates: start: 201302

REACTIONS (3)
  - Off label use [Unknown]
  - Drug ineffective for unapproved indication [Unknown]
  - Headache [Unknown]

NARRATIVE: CASE EVENT DATE: 201502
